FAERS Safety Report 24675510 (Version 2)
Quarter: 2024Q4

REPORT INFORMATION
  Report Type: Report from Study
  Country: US (occurrence: US)
  Receive Date: 20241128
  Receipt Date: 20241209
  Transmission Date: 20250114
  Serious: Yes (Hospitalization)
  Sender: ROCHE
  Company Number: US-ROCHE-10000136880

PATIENT
  Age: 62 Year
  Sex: Male
  Weight: 70.3 kg

DRUGS (12)
  1. OCREVUS [Suspect]
     Active Substance: OCRELIZUMAB
     Indication: Multiple sclerosis
     Route: 042
  2. DALFAMPRIDINE [Concomitant]
     Active Substance: DALFAMPRIDINE
     Dosage: 2 TABLETS DAILY ONE IN THE MORNING AND ONE AT BEDTIME
  3. ZYLOPRIM [Concomitant]
     Active Substance: ALLOPURINOL
  4. TYLENOL [Concomitant]
     Active Substance: ACETAMINOPHEN
  5. LIORESAL [Concomitant]
     Active Substance: BACLOFEN
  6. NORVASC [Concomitant]
     Active Substance: AMLODIPINE BESYLATE
  7. DECADRON [Concomitant]
     Active Substance: DEXAMETHASONE
  8. DICLOFENAC [Concomitant]
     Active Substance: DICLOFENAC
  9. CLARINEX [Concomitant]
     Active Substance: DESLORATADINE
  10. FLONASE [Concomitant]
     Active Substance: FLUTICASONE PROPIONATE
  11. ZANAFLEX [Concomitant]
     Active Substance: TIZANIDINE HYDROCHLORIDE
  12. NEURONTIN [Concomitant]
     Active Substance: GABAPENTIN

REACTIONS (3)
  - COVID-19 [Recovered/Resolved]
  - Thrombosis [Recovered/Resolved]
  - Wound [Unknown]
